FAERS Safety Report 19648257 (Version 1)
Quarter: 2021Q3

REPORT INFORMATION
  Report Type: Spontaneous
  Country: US (occurrence: US)
  Receive Date: 20210802
  Receipt Date: 20210802
  Transmission Date: 20211014
  Serious: No
  Sender: FDA-Public Use
  Company Number: US-SA-2021SA252727

PATIENT
  Sex: Female

DRUGS (1)
  1. AUBAGIO [Suspect]
     Active Substance: TERIFLUNOMIDE
     Indication: MULTIPLE SCLEROSIS
     Dosage: 14 MG, QD
     Route: 048
     Dates: start: 20200226

REACTIONS (6)
  - Fatigue [Unknown]
  - Sensory disturbance [Unknown]
  - Aphasia [Unknown]
  - Cognitive disorder [Unknown]
  - Product dose omission issue [Unknown]
  - Balance disorder [Unknown]
